FAERS Safety Report 10575856 (Version 1)
Quarter: 2014Q4

REPORT INFORMATION
  Report Type: Spontaneous
  Country: US (occurrence: None)
  Receive Date: 20141110
  Receipt Date: 20141110
  Transmission Date: 20150529
  Serious: Yes (Life-Threatening, Other)
  Sender: FDA-Public Use
  Company Number: None

PATIENT
  Age: 59 Year
  Sex: Female
  Weight: 69 kg

DRUGS (7)
  1. FLUTICASONE-SALMETEROL [Concomitant]
  2. ENOXAPARIN [Concomitant]
     Active Substance: ENOXAPARIN
  3. MIRTAZAPINE. [Concomitant]
     Active Substance: MIRTAZAPINE
  4. SAMSCA [Suspect]
     Active Substance: TOLVAPTAN
     Indication: INAPPROPRIATE ANTIDIURETIC HORMONE SECRETION
     Route: 048
     Dates: start: 20141106, end: 20141107
  5. CLONAZEPAM. [Concomitant]
     Active Substance: CLONAZEPAM
  6. NICOTINE TRANSERMAL PATCH [Concomitant]
  7. CITALOPRAM [Concomitant]
     Active Substance: CITALOPRAM HYDROBROMIDE

REACTIONS (1)
  - Osmotic demyelination syndrome [None]

NARRATIVE: CASE EVENT DATE: 20141107
